FAERS Safety Report 23271503 (Version 1)
Quarter: 2023Q4

REPORT INFORMATION
  Report Type: Spontaneous
  Country: US (occurrence: US)
  Receive Date: 20231207
  Receipt Date: 20231207
  Transmission Date: 20240110
  Serious: No
  Sender: FDA-Public Use
  Company Number: US-BRISTOL-MYERS SQUIBB COMPANY-2023-169154

PATIENT
  Age: 74 Year
  Sex: Male
  Weight: 112.13 kg

DRUGS (2)
  1. REVLIMID [Suspect]
     Active Substance: LENALIDOMIDE
     Indication: Product used for unknown indication
     Dosage: FREQ-21 DAYS ON 7 DAYS OFF
     Route: 048
     Dates: start: 20170519, end: 20170907
  2. REVLIMID [Suspect]
     Active Substance: LENALIDOMIDE
     Dosage: FREQ-21 DAYS ON 7 DAYS OFF
     Route: 048
     Dates: start: 20170917, end: 20180510

REACTIONS (1)
  - Toxicity to various agents [Unknown]

NARRATIVE: CASE EVENT DATE: 20170101
